FAERS Safety Report 10344765 (Version 1)
Quarter: 2014Q3

REPORT INFORMATION
  Report Type: Spontaneous
  Country: US (occurrence: None)
  Receive Date: 20140725
  Receipt Date: 20140725
  Transmission Date: 20150326
  Serious: No
  Sender: FDA-Public Use
  Company Number: None

PATIENT
  Sex: Male

DRUGS (1)
  1. STIVARGA [Suspect]
     Active Substance: REGORAFENIB
     Indication: COLON CANCER
     Route: 048
     Dates: start: 20140505

REACTIONS (6)
  - Oropharyngeal pain [None]
  - Tonsillar disorder [None]
  - Pain [None]
  - Gait disturbance [None]
  - Blood pressure fluctuation [None]
  - Diarrhoea [None]
